FAERS Safety Report 16653296 (Version 2)
Quarter: 2019Q3

REPORT INFORMATION
  Report Type: Report from Study
  Country: US (occurrence: US)
  Receive Date: 20190731
  Receipt Date: 20190829
  Transmission Date: 20191004
  Serious: Yes (Hospitalization)
  Sender: FDA-Public Use
  Company Number: US-PFIZER INC-2019298064

PATIENT
  Age: 64 Year
  Sex: Female

DRUGS (1)
  1. IBRANCE [Suspect]
     Active Substance: PALBOCICLIB
     Indication: BREAST CANCER FEMALE
     Dosage: 125 MG, CYCLIC, (21 DAYS ON, 7 OFF)
     Route: 048
     Dates: start: 20190611

REACTIONS (17)
  - Fatigue [Recovering/Resolving]
  - Dehydration [Recovering/Resolving]
  - Dizziness [Unknown]
  - Arrhythmia [Unknown]
  - Oral pain [Unknown]
  - Oropharyngeal pain [Unknown]
  - Weight decreased [Recovering/Resolving]
  - Blood pressure decreased [Unknown]
  - Dyspepsia [Recovering/Resolving]
  - Contusion [Unknown]
  - Nausea [Recovering/Resolving]
  - Constipation [Recovering/Resolving]
  - International normalised ratio increased [Unknown]
  - Oral candidiasis [Unknown]
  - Vomiting [Recovering/Resolving]
  - White blood cell count decreased [Recovering/Resolving]
  - Oral discomfort [Unknown]

NARRATIVE: CASE EVENT DATE: 2019
